FAERS Safety Report 18666129 (Version 1)
Quarter: 2020Q4

REPORT INFORMATION
  Report Type: Spontaneous
  Country: DE (occurrence: DE)
  Receive Date: 20201226
  Receipt Date: 20201226
  Transmission Date: 20210114
  Serious: Yes (Hospitalization)
  Sender: FDA-Public Use
  Company Number: DE-TEVA-2020-DE-1861263

PATIENT
  Age: 58 Year
  Sex: Male

DRUGS (10)
  1. DEXAMETHASON [Suspect]
     Active Substance: DEXAMETHASONE
     Dosage: FIRST GIFT ON 23-DEC-2020
  2. CYTARABIN [Suspect]
     Active Substance: CYTARABINE
     Dosage: FIRST GIFT ON 23-DEC-2020
  3. RITUXIMAB. [Suspect]
     Active Substance: RITUXIMAB
     Dosage: FIRST GIFT ON 23-DEC-2020
  4. PANTOPRAZOL [Concomitant]
     Active Substance: PANTOPRAZOLE SODIUM
     Dosage: 40 MILLIGRAM DAILY; 1-0-0-0
  5. METAMIZOL [Concomitant]
     Active Substance: METAMIZOLE SODIUM
     Dosage: 500 MG, 1-1-1-0, UNIT DOSE : 1500 MG
  6. COTRIM [Concomitant]
     Active Substance: SULFAMETHOXAZOLE\TRIMETHOPRIM
     Dosage: 800 | 160 MG / 3 TIMES A WEEK, MON WED FRI, UNIT DOSE : 3 DF
  7. COLECALCIFEROL (VITAMIN D) [Concomitant]
     Dosage: 20,000 IU / WEEK, 1X
  8. ALLOPURINOL. [Concomitant]
     Active Substance: ALLOPURINOL
     Dosage: 300 MILLIGRAM DAILY;  1-0-0-0
  9. ACICLOVIR [Concomitant]
     Active Substance: ACYCLOVIR
     Dosage: 400 MILLIGRAM DAILY; 1-0-1-0
  10. CARBOPLATIN. [Suspect]
     Active Substance: CARBOPLATIN
     Dosage: FIRST GIFT ON 23-DEC-2020

REACTIONS (2)
  - Systemic infection [Unknown]
  - Pyrexia [Unknown]
